FAERS Safety Report 4588251-7 (Version None)
Quarter: 2005Q1

REPORT INFORMATION
  Report Type: 
  Country: None (occurrence: None)
  Receive Date: 20050221
  Receipt Date: 20050114
  Transmission Date: 20050727
  Serious: Yes (Other)
  Sender: FDA-Public Use
  Company Number: CA-ABBOTT-05P-028-0287670-00

PATIENT

DRUGS (10)
  1. MAVIK [Suspect]
     Indication: DRUG USE FOR UNKNOWN INDICATION
  2. GLIBENCLAMIDE [Concomitant]
     Indication: DIABETES MELLITUS
     Dates: start: 19990101, end: 20041204
  3. ROSIGLITAZONE MALEATE [Concomitant]
     Indication: DIABETES MELLITUS
     Dates: start: 20020101
  4. METFORMIN HCL [Concomitant]
     Indication: DIABETES MELLITUS
     Dates: start: 20041020
  5. GLICLAZIDE [Concomitant]
     Indication: DIABETES MELLITUS
     Dates: start: 20041204
  6. FUROSEMIDE [Concomitant]
     Indication: CARDIAC FAILURE
     Dates: start: 20041204
  7. LORAZEPAM [Concomitant]
     Indication: INSOMNIA
     Dates: start: 20041204
  8. DILTIAZEM HYDROCHLORIDE [Concomitant]
     Indication: SUPRAVENTRICULAR TACHYCARDIA
     Dates: start: 20041204
  9. COMBIVENT [Concomitant]
     Indication: CHRONIC OBSTRUCTIVE PULMONARY DISEASE
     Dates: start: 20041204
  10. FLUTICASONE PROPIONATE [Concomitant]
     Indication: CHRONIC OBSTRUCTIVE PULMONARY DISEASE
     Dates: start: 20041204, end: 20041219

REACTIONS (2)
  - CARDIAC FAILURE [None]
  - SUPERINFECTION LUNG [None]
